FAERS Safety Report 13079180 (Version 2)
Quarter: 2017Q1

REPORT INFORMATION
  Report Type: Spontaneous
  Country: US (occurrence: US)
  Receive Date: 20170103
  Receipt Date: 20170217
  Transmission Date: 20170428
  Serious: No
  Sender: FDA-Public Use
  Company Number: US-ASTRAZENECA-2016SF38286

PATIENT
  Age: 58 Year
  Sex: Female
  Weight: 72.6 kg

DRUGS (1)
  1. PULMICORT FLEXHALER [Suspect]
     Active Substance: BUDESONIDE
     Indication: OBSTRUCTIVE AIRWAYS DISORDER
     Route: 055
     Dates: start: 2009

REACTIONS (8)
  - Underdose [Unknown]
  - Limb discomfort [Unknown]
  - Product use issue [Unknown]
  - Device issue [Unknown]
  - Intentional product misuse [Unknown]
  - Musculoskeletal discomfort [Unknown]
  - Gait disturbance [Unknown]
  - Off label use [Unknown]

NARRATIVE: CASE EVENT DATE: 2009
